FAERS Safety Report 4443194-4 (Version None)
Quarter: 2004Q3

REPORT INFORMATION
  Report Type: 
  Country: None (occurrence: None)
  Receive Date: 20040907
  Receipt Date: 20040907
  Transmission Date: 20050211
  Serious: Yes (Hospitalization)
  Sender: FDA-Public Use
  Company Number: None

PATIENT
  Sex: Female
  Weight: 50.35 kg

DRUGS (7)
  1. TEQUIN [Suspect]
     Indication: PNEUMONIA
     Dosage: 400MG  DAILY  ORAL
     Route: 048
     Dates: start: 20040825, end: 20040902
  2. TEQUIN [Suspect]
     Indication: URINARY TRACT INFECTION
     Dosage: 400MG  DAILY  ORAL
     Route: 048
     Dates: start: 20040825, end: 20040902
  3. NITROGLYCERIN [Concomitant]
  4. LIPITOR [Concomitant]
  5. ASPIRIN [Concomitant]
  6. NORVASC [Concomitant]
  7. PLAVIX [Concomitant]

REACTIONS (9)
  - ABDOMINAL PAIN LOWER [None]
  - CHEST PAIN [None]
  - COMMUNICATION DISORDER [None]
  - CONFUSIONAL STATE [None]
  - DYSPNOEA [None]
  - FEELING ABNORMAL [None]
  - HYPERGLYCAEMIA [None]
  - HYPERNATRAEMIA [None]
  - HYPEROSMOLAR STATE [None]
